FAERS Safety Report 18907875 (Version 1)
Quarter: 2021Q1

REPORT INFORMATION
  Report Type: Spontaneous
  Country: US (occurrence: US)
  Receive Date: 20210217
  Receipt Date: 20210217
  Transmission Date: 20210420
  Serious: Yes (Other)
  Sender: FDA-Public Use
  Company Number: US-SUN PHARMACEUTICAL INDUSTRIES LTD-2021R1-281013

PATIENT
  Age: 27 Year
  Sex: Female

DRUGS (4)
  1. VERAPAMIL [Suspect]
     Active Substance: VERAPAMIL HYDROCHLORIDE
     Indication: PRODUCT USED FOR UNKNOWN INDICATION
     Dosage: 18000 MILLIGRAM , UNK
     Route: 065
  2. DOBUTAMINE [Suspect]
     Active Substance: DOBUTAMINE HYDROCHLORIDE
     Indication: HYPOTENSION
     Dosage: UNK
     Route: 065
  3. NORADRENALINE [Suspect]
     Active Substance: NOREPINEPHRINE
     Indication: HYPOTENSION
     Dosage: UNK
     Route: 065
  4. INSULIN [Suspect]
     Active Substance: INSULIN NOS
     Indication: HYPOTENSION
     Dosage: UNK
     Route: 065

REACTIONS (6)
  - Hypotension [Unknown]
  - Cardio-respiratory arrest [Unknown]
  - Overdose [Unknown]
  - Acute respiratory failure [Recovered/Resolved]
  - Hypoxia [Recovered/Resolved]
  - Non-cardiogenic pulmonary oedema [Recovered/Resolved]
